FAERS Safety Report 17048162 (Version 7)
Quarter: 2023Q1

REPORT INFORMATION
  Report Type: Spontaneous
  Country: US (occurrence: US)
  Receive Date: 20191119
  Receipt Date: 20230224
  Transmission Date: 20230418
  Serious: Yes (Other)
  Sender: FDA-Public Use
  Company Number: US-PFIZER INC-2019454838

PATIENT
  Age: 82 Year
  Sex: Female
  Weight: 56 kg

DRUGS (4)
  1. XELJANZ [Suspect]
     Active Substance: TOFACITINIB CITRATE
     Indication: Rheumatoid arthritis
     Dosage: 5 MG, 2X/DAY (60 TABLETS)
     Route: 048
     Dates: start: 201906
  2. XELJANZ [Suspect]
     Active Substance: TOFACITINIB CITRATE
     Dosage: 5 MG, 1X/DAY (30 TABLETS)
     Route: 048
  3. METHOTREXATE [Concomitant]
     Active Substance: METHOTREXATE
     Dosage: 15 MG, WEEKLY (2.5 MG 3X AM 3XPM } MONDAY ONLY)
  4. PREDNISONE [Concomitant]
     Active Substance: PREDNISONE
     Dosage: 5 MG, 1X/DAY

REACTIONS (6)
  - Tooth infection [Unknown]
  - Dermal cyst [Unknown]
  - Off label use [Unknown]
  - Alopecia [Not Recovered/Not Resolved]
  - Dry eye [Unknown]
  - Crying [Unknown]

NARRATIVE: CASE EVENT DATE: 20190601
